FAERS Safety Report 5804895-6 (Version None)
Quarter: 2008Q3

REPORT INFORMATION
  Report Type: 
  Country: None (occurrence: None)
  Receive Date: 20080709
  Receipt Date: 20080627
  Transmission Date: 20090109
  Serious: Yes (Hospitalization, Other)
  Sender: FDA-Public Use
  Company Number: DE-PFIZER INC-2008034148

PATIENT
  Sex: Male
  Weight: 105 kg

DRUGS (7)
  1. LYRICA [Suspect]
     Indication: DETOXIFICATION
     Route: 048
  2. LYRICA [Suspect]
     Indication: ANXIETY
  3. LYRICA [Suspect]
     Indication: RESTLESSNESS
  4. LYRICA [Suspect]
     Indication: CONVULSION PROPHYLAXIS
  5. TREVILOR [Suspect]
     Route: 048
  6. EDRONAX [Suspect]
  7. ALCOHOL [Suspect]

REACTIONS (6)
  - AGGRESSION [None]
  - CIRCULATORY COLLAPSE [None]
  - DRUG DEPENDENCE [None]
  - OVERDOSE [None]
  - RESTLESSNESS [None]
  - SOMNOLENCE [None]
